FAERS Safety Report 9154534 (Version 1)
Quarter: 2013Q1

REPORT INFORMATION
  Report Type: Spontaneous
  Country: US (occurrence: US)
  Receive Date: 20130311
  Receipt Date: 20130311
  Transmission Date: 20140127
  Serious: No
  Sender: FDA-Public Use
  Company Number: US-ABBOTT-12P-163-0918237-00

PATIENT
  Sex: Female
  Weight: 93.07 kg

DRUGS (2)
  1. LUPRON DEPOT 11.25 MG [Suspect]
     Indication: UTERINE LEIOMYOMA
     Route: 030
     Dates: start: 20120304
  2. PREMPRO [Concomitant]
     Indication: HOT FLUSH
     Dates: start: 20120304

REACTIONS (3)
  - Menorrhagia [Not Recovered/Not Resolved]
  - Blood count abnormal [Unknown]
  - Therapeutic response unexpected [Unknown]
